FAERS Safety Report 8557536-1 (Version None)
Quarter: 2012Q3

REPORT INFORMATION
  Report Type: 
  Country: None (occurrence: None)
  Receive Date: 20120801
  Receipt Date: 20120727
  Transmission Date: 20120928
  Serious: Yes (Hospitalization, Other)
  Sender: FDA-Public Use
  Company Number: US-PFIZER INC-2012123831

PATIENT
  Sex: Male

DRUGS (5)
  1. EFFEXOR [Concomitant]
     Indication: DEPRESSION
     Dosage: UNK
     Dates: start: 20060101
  2. CHANTIX [Suspect]
     Indication: SMOKING CESSATION THERAPY
     Dosage: 0.5/1 MG
     Dates: start: 20070301, end: 20070301
  3. CHANTIX [Suspect]
     Dosage: 0.5/1 MG
     Dates: start: 20090901, end: 20091101
  4. SEROQUEL [Concomitant]
     Indication: INSOMNIA
     Dosage: UNK
     Dates: start: 20060101
  5. LAMICTAL [Concomitant]
     Indication: BIPOLAR DISORDER
     Dosage: UNK
     Dates: start: 20070101

REACTIONS (5)
  - SUICIDE ATTEMPT [None]
  - ANXIETY [None]
  - IRRITABILITY [None]
  - DEPRESSION [None]
  - ABNORMAL BEHAVIOUR [None]
